FAERS Safety Report 21999551 (Version 1)
Quarter: 2023Q1

REPORT INFORMATION
  Report Type: Report from Study
  Country: EG (occurrence: EG)
  Receive Date: 20230216
  Receipt Date: 20230216
  Transmission Date: 20230418
  Serious: Yes (Hospitalization)
  Sender: FDA-Public Use
  Company Number: EG-002147023-NVSC2023EG027914

PATIENT

DRUGS (2)
  1. RUXOLITINIB [Suspect]
     Active Substance: RUXOLITINIB
     Indication: Bone marrow disorder
     Dosage: 20 MG, BID
     Route: 048
  2. RUXOLITINIB [Suspect]
     Active Substance: RUXOLITINIB
     Indication: White blood cell count increased
     Dosage: 15 MG, BID (STARTED 3 MONTHS AGO)
     Route: 048

REACTIONS (10)
  - Anaemia [Recovered/Resolved]
  - Blood creatinine abnormal [Recovered/Resolved]
  - Fatigue [Recovered/Resolved]
  - Dyspepsia [Recovered/Resolved]
  - Cholecystitis [Recovered/Resolved]
  - Product use in unapproved indication [Unknown]
  - Renal impairment [Recovered/Resolved]
  - Peripheral swelling [Recovered/Resolved]
  - Feeding disorder [Recovered/Resolved]
  - Gait inability [Recovered/Resolved]

NARRATIVE: CASE EVENT DATE: 20220101
